FAERS Safety Report 16911032 (Version 1)
Quarter: 2019Q4

REPORT INFORMATION
  Report Type: Spontaneous
  Country: FR (occurrence: FR)
  Receive Date: 20191012
  Receipt Date: 20191012
  Transmission Date: 20200122
  Serious: Yes (Hospitalization)
  Sender: FDA-Public Use
  Company Number: FR-ACCORD-157261

PATIENT
  Age: 51 Year
  Sex: Male
  Weight: 56 kg

DRUGS (11)
  1. BINOCRIT [Concomitant]
     Active Substance: ERYTHROPOIETIN
     Indication: ANAEMIA
     Route: 058
     Dates: start: 201902
  2. ZARZIO [Concomitant]
     Active Substance: FILGRASTIM
     Indication: NEUTROPENIA
     Dosage: DAY 5 TO DAY 8 POST TREATMENT
     Route: 058
     Dates: start: 201906
  3. LAROXYL [Concomitant]
     Active Substance: AMITRIPTYLINE HYDROCHLORIDE
     Indication: ANALGESIC INTERVENTION SUPPORTIVE THERAPY
     Dosage: 0-0-20 GOUTTES
     Route: 048
     Dates: start: 201904
  4. SPECIAFOLDINE [Concomitant]
     Active Substance: FOLIC ACID
     Indication: HYPOVITAMINOSIS
     Dosage: 1-0-1, 5MG
     Route: 048
     Dates: start: 201902, end: 20190819
  5. FUMAFER [Concomitant]
     Active Substance: FERROUS FUMARATE
     Indication: IRON DEFICIENCY
     Dosage: 3 / DAY, 66 MG
     Route: 048
     Dates: start: 201902
  6. PARACETAMOL [Concomitant]
     Active Substance: ACETAMINOPHEN
     Indication: ANALGESIC INTERVENTION SUPPORTIVE THERAPY
     Dosage: IF REQUIRED
     Route: 048
     Dates: start: 201810
  7. FLUOROURACIL. [Suspect]
     Active Substance: FLUOROURACIL
     Indication: SKIN CANCER
     Dosage: 1000 MG / M2 FOR 4 DAYS OR 1720 MG
     Route: 042
     Dates: start: 20190204
  8. CISPLATINE MYLAN [Suspect]
     Active Substance: CISPLATIN
     Indication: SKIN CANCER
     Dosage: 100 MG/M2 SOIT 172 MG
     Route: 042
     Dates: start: 20190204
  9. PREGABALIN. [Concomitant]
     Active Substance: PREGABALIN
     Indication: ANALGESIC INTERVENTION SUPPORTIVE THERAPY
     Dosage: 1-0-1
     Route: 048
     Dates: start: 201810
  10. METOCLOPRAMIDE. [Concomitant]
     Active Substance: METOCLOPRAMIDE
     Indication: ANTIEMETIC SUPPORTIVE CARE
     Dosage: IF REQUIRED
     Route: 048
     Dates: start: 201902
  11. AMLOR [Concomitant]
     Active Substance: AMLODIPINE BESYLATE
     Indication: HYPERTENSION
     Dosage: 1-0-0
     Route: 048
     Dates: start: 201905

REACTIONS (1)
  - Ischaemic stroke [Recovered/Resolved]

NARRATIVE: CASE EVENT DATE: 20190711
